FAERS Safety Report 10736935 (Version 2)
Quarter: 2015Q1

REPORT INFORMATION
  Report Type: Report from Study
  Country: GB (occurrence: GB)
  Receive Date: 20150126
  Receipt Date: 20150205
  Transmission Date: 20150721
  Serious: Yes (Other)
  Sender: FDA-Public Use
  Company Number: GB-ACTELION-A-CH2015-110843

PATIENT
  Age: 34 Year
  Sex: Female
  Weight: 65 kg

DRUGS (7)
  1. PREDNISOLONE. [Concomitant]
     Active Substance: PREDNISOLONE
     Dosage: 7.5 MG, UNK
     Route: 048
  2. TRACLEER [Suspect]
     Active Substance: BOSENTAN\BOSENTAN MONOHYDRATE
     Dosage: 62.5 MG, BID
     Route: 048
     Dates: start: 20131113, end: 20131203
  3. IRON [Concomitant]
     Active Substance: IRON
     Route: 048
  4. TRACLEER [Suspect]
     Active Substance: BOSENTAN\BOSENTAN MONOHYDRATE
     Indication: SCLERODERMA ASSOCIATED DIGITAL ULCER
     Dosage: 125 MG, BID
     Route: 048
     Dates: start: 20131204, end: 20140510
  5. TRACLEER [Suspect]
     Active Substance: BOSENTAN\BOSENTAN MONOHYDRATE
     Dosage: 62.5 MG, BID
     Route: 048
     Dates: start: 20140901, end: 20140905
  6. OMEPRAZOLE. [Concomitant]
     Active Substance: OMEPRAZOLE
     Dosage: 40 MG, UNK
     Route: 048
  7. ADCAL D3 [Concomitant]
     Active Substance: CALCIUM CARBONATE\CHOLECALCIFEROL
     Route: 048

REACTIONS (4)
  - Alanine aminotransferase increased [Recovered/Resolved]
  - Liver function test abnormal [Recovered/Resolved]
  - Blood alkaline phosphatase increased [Recovered/Resolved]
  - Gamma-glutamyltransferase increased [Recovered/Resolved]

NARRATIVE: CASE EVENT DATE: 20140124
